FAERS Safety Report 5581483-0 (Version None)
Quarter: 2008Q1

REPORT INFORMATION
  Report Type: 
  Country: None (occurrence: None)
  Receive Date: 20080103
  Receipt Date: 20080103
  Transmission Date: 20080703
  Serious: Yes (Life-Threatening, Hospitalization)
  Sender: FDA-Public Use
  Company Number: None

PATIENT
  Age: 32 Year
  Sex: Female
  Weight: 74.8435 kg

DRUGS (1)
  1. YAZ [Suspect]
     Dates: start: 20070901, end: 20071226

REACTIONS (1)
  - PULMONARY THROMBOSIS [None]
